FAERS Safety Report 9299423 (Version 1)
Quarter: 2013Q2

REPORT INFORMATION
  Report Type: Spontaneous
  Country: FR (occurrence: FR)
  Receive Date: 20130520
  Receipt Date: 20130520
  Transmission Date: 20140414
  Serious: Yes (Hospitalization)
  Sender: FDA-Public Use
  Company Number: FR-ABBOTT-13X-056-1090476-00

PATIENT
  Age: 63 Year
  Sex: Female

DRUGS (3)
  1. ZECLAR [Suspect]
     Indication: GASTROENTERITIS
     Dosage: DURING THE DAY ONE TABLET AT NOON AND EVENING
     Route: 048
     Dates: start: 20130209, end: 20130212
  2. HEPT-A-MYL [Concomitant]
     Indication: PRODUCT USED FOR UNKNOWN INDICATION
     Route: 048
  3. MOPRAL [Concomitant]
     Indication: PRODUCT USED FOR UNKNOWN INDICATION
     Route: 048

REACTIONS (8)
  - Hypotension [Recovered/Resolved]
  - Tachycardia [Recovered/Resolved]
  - Haemorrhagic stroke [Recovered/Resolved]
  - Loss of consciousness [Recovered/Resolved]
  - Face injury [Recovered/Resolved]
  - Malaise [Recovered/Resolved]
  - Erythema [Recovered/Resolved]
  - Pruritus [Recovered/Resolved]
